FAERS Safety Report 4822819-5 (Version None)
Quarter: 2005Q4

REPORT INFORMATION
  Report Type: 
  Country: None (occurrence: None)
  Receive Date: 20051107
  Receipt Date: 20051107
  Transmission Date: 20060501
  Serious: Yes (Hospitalization)
  Sender: FDA-Public Use
  Company Number: None

PATIENT
  Sex: Female
  Weight: 61 kg

DRUGS (3)
  1. IVIG-GAMUNEX 10% BAYER [Suspect]
     Dosage: 130 GM  X 1 IV
     Route: 042
     Dates: start: 20051012
  2. RITUXAN [Suspect]
     Dosage: 1 GM  Q2 WKS X 2 DOSES ONLY IV
     Route: 042
     Dates: start: 20051018
  3. RITUXAN [Suspect]
     Dosage: 1 GM  Q2 WKS X 2 DOSES ONLY IV
     Route: 042
     Dates: start: 20051101

REACTIONS (3)
  - ASTHENIA [None]
  - FATIGUE [None]
  - HAEMATOCRIT DECREASED [None]
